FAERS Safety Report 9140157 (Version 1)
Quarter: 2013Q1

REPORT INFORMATION
  Report Type: Spontaneous
  Country: US (occurrence: US)
  Receive Date: 20130305
  Receipt Date: 20130305
  Transmission Date: 20140127
  Serious: No
  Sender: FDA-Public Use
  Company Number: US-PFIZER INC-2013073451

PATIENT
  Age: 7 Year
  Sex: Female
  Weight: 48.98 kg

DRUGS (1)
  1. CHILDRENS ADVIL [Suspect]
     Indication: PYREXIA
     Dosage: UNK, ONE TIME
     Route: 048
     Dates: start: 200207, end: 200207

REACTIONS (4)
  - Swollen tongue [Recovered/Resolved]
  - Lip swelling [Recovered/Resolved]
  - Swelling face [Recovered/Resolved]
  - Hypersensitivity [Recovered/Resolved]
